FAERS Safety Report 4876404-X (Version None)
Quarter: 2005Q4

REPORT INFORMATION
  Report Type: 
  Country: None (occurrence: None)
  Receive Date: 20051206
  Receipt Date: 20051004
  Transmission Date: 20060501
  Serious: Yes (Death, Other)
  Sender: FDA-Public Use
  Company Number: USA0510109900

PATIENT
  Age: 22 Year
  Sex: Female

DRUGS (5)
  1. CYMBALTA [Suspect]
     Indication: DEPRESSION
     Dosage: 60 MG DAY
     Dates: start: 20050802
  2. MOBIC [Concomitant]
  3. ESZOPICLONE [Concomitant]
  4. XANAX [Concomitant]
  5. PREVACID [Concomitant]

REACTIONS (1)
  - COMPLETED SUICIDE [None]
